FAERS Safety Report 4337268-6 (Version None)
Quarter: 2004Q2

REPORT INFORMATION
  Report Type: 
  Country: None (occurrence: None)
  Receive Date: 20040408
  Receipt Date: 20040330
  Transmission Date: 20050107
  Serious: Yes (Hospitalization)
  Sender: FDA-Public Use
  Company Number: 03P-087-0243566-00

PATIENT
  Age: 30 Year
  Sex: Male

DRUGS (5)
  1. KALETRA [Suspect]
     Indication: HIV INFECTION
     Dosage: 6 CAPSULE, 1 IN 1 D, PER ORAL
     Route: 048
     Dates: start: 20020603, end: 20021016
  2. ZIDOVUDINE [Concomitant]
  3. DIDANOSINE [Concomitant]
  4. EFAVIRENZ [Concomitant]
  5. NELFINAVIR MESILATE [Concomitant]

REACTIONS (1)
  - HEPATITIS B [None]
